FAERS Safety Report 19690442 (Version 1)
Quarter: 2021Q3

REPORT INFORMATION
  Report Type: Spontaneous
  Country: US (occurrence: US)
  Receive Date: 20210812
  Receipt Date: 20210812
  Transmission Date: 20211014
  Serious: No
  Sender: FDA-Public Use
  Company Number: None

PATIENT
  Age: 19 Year
  Sex: Female

DRUGS (1)
  1. HUMIRA [Suspect]
     Active Substance: ADALIMUMAB
     Indication: COLITIS ULCERATIVE
     Dosage: 160MG /2 PENS UNDER THE SKIN ON DAY, THEN 80MG/1 ON DAY 15, THEN STAR MAINTENENCE DOSING AS DIRECTED ON DAY 29
     Route: 058
     Dates: start: 20210709

REACTIONS (2)
  - Device malfunction [None]
  - Incorrect dose administered [None]

NARRATIVE: CASE EVENT DATE: 20210716
